FAERS Safety Report 19778627 (Version 1)
Quarter: 2021Q3

REPORT INFORMATION
  Report Type: Other
  Country: GB (occurrence: GB)
  Receive Date: 20210902
  Receipt Date: 20210902
  Transmission Date: 20211014
  Serious: Yes (Other)
  Sender: FDA-Public Use
  Company Number: GB-STRIDES ARCOLAB LIMITED-2021SP027047

PATIENT
  Age: 36 Year
  Sex: Female

DRUGS (5)
  1. IMRALDI [Suspect]
     Active Substance: ADALIMUMAB
     Dosage: 40 MILLIGRAM EVERY 2 WEEKS FORTNIGHTLY
     Route: 058
  2. PREDNISOLONE. [Suspect]
     Active Substance: PREDNISOLONE
     Dosage: UNK, DOSE REDUCED
     Route: 065
  3. IMRALDI [Suspect]
     Active Substance: ADALIMUMAB
     Indication: CROHN^S DISEASE
     Dosage: 160 MILLIGRAM, SOLUTION FOR INJECTION IN PRE?FILLED PEN AT WEEK ZERO
     Route: 058
     Dates: start: 20210702
  4. PREDNISOLONE. [Suspect]
     Active Substance: PREDNISOLONE
     Indication: PRODUCT USED FOR UNKNOWN INDICATION
     Dosage: UNK
     Route: 065
  5. IMRALDI [Suspect]
     Active Substance: ADALIMUMAB
     Dosage: 80 MILLIGRAM AT WEEK 2
     Route: 058

REACTIONS (5)
  - Crohn^s disease [Unknown]
  - Fatigue [Unknown]
  - Nausea [Unknown]
  - Lethargy [Recovered/Resolved]
  - Fear of injection [Recovered/Resolved]
